FAERS Safety Report 7458106-9 (Version None)
Quarter: 2011Q2

REPORT INFORMATION
  Report Type: 
  Country: None (occurrence: None)
  Receive Date: 20110504
  Receipt Date: 20110420
  Transmission Date: 20111010
  Serious: Yes (Death, Hospitalization)
  Sender: FDA-Public Use
  Company Number: ES-CELGENEUS-144-21880-11031195

PATIENT
  Sex: Male
  Weight: 57 kg

DRUGS (7)
  1. REVLIMID [Suspect]
     Indication: CHRONIC LYMPHOCYTIC LEUKAEMIA
     Dosage: 10 MILLIGRAM
     Route: 048
     Dates: start: 20110127, end: 20110304
  2. TEICOPLANIN [Concomitant]
     Route: 065
     Dates: start: 20110305, end: 20110305
  3. FLUCONAZOLE [Concomitant]
     Route: 065
     Dates: start: 20110120, end: 20110304
  4. TAZOCEL [Concomitant]
     Route: 065
     Dates: start: 20110115, end: 20110126
  5. RITUXIMAB [Suspect]
     Indication: CHRONIC LYMPHOCYTIC LEUKAEMIA
     Dosage: 500 MILLIGRAM/SQ. METER
     Route: 051
     Dates: start: 20110125, end: 20110222
  6. TEICOPLANIN [Concomitant]
     Route: 065
     Dates: start: 20110118, end: 20110202
  7. TAZOCEL [Concomitant]
     Route: 065
     Dates: start: 20110305, end: 20110305

REACTIONS (2)
  - SEPTIC SHOCK [None]
  - FEBRILE NEUTROPENIA [None]
